FAERS Safety Report 4439878-4 (Version None)
Quarter: 2004Q3

REPORT INFORMATION
  Report Type: 
  Country: None (occurrence: None)
  Receive Date: 20040902
  Receipt Date: 20040518
  Transmission Date: 20050211
  Serious: Yes (Hospitalization, Other)
  Sender: FDA-Public Use
  Company Number: JP-MERCK-0405USA01665

PATIENT
  Age: 74 Year
  Sex: Male

DRUGS (5)
  1. HALOSPOR [Concomitant]
     Route: 042
     Dates: start: 20040330, end: 20040408
  2. PEPCID [Suspect]
     Indication: GASTROINTESTINAL HAEMORRHAGE
     Route: 042
     Dates: start: 20040403, end: 20040412
  3. LASIX [Concomitant]
     Route: 042
     Dates: start: 20040405, end: 20040412
  4. SIGMART [Concomitant]
     Route: 042
     Dates: start: 20040407, end: 20040506
  5. OMEPRAL [Concomitant]
     Route: 042
     Dates: start: 20040330, end: 20040402

REACTIONS (3)
  - CORONARY ARTERY DISEASE [None]
  - NEUTROPENIA [None]
  - VENTRICULAR FIBRILLATION [None]
